FAERS Safety Report 22294523 (Version 1)
Quarter: 2023Q2

REPORT INFORMATION
  Report Type: Spontaneous
  Country: US (occurrence: None)
  Receive Date: 20230505
  Receipt Date: 20230505
  Transmission Date: 20230721
  Serious: No
  Sender: FDA-Public Use
  Company Number: None

PATIENT
  Sex: Female

DRUGS (1)
  1. GATTEX [Suspect]
     Active Substance: TEDUGLUTIDE\WATER
     Indication: Short-bowel syndrome
     Dosage: 0.32ML DAILY SUBQ
     Route: 058
     Dates: start: 202303

REACTIONS (4)
  - Abdominal distension [None]
  - Flatulence [None]
  - Syringe issue [None]
  - Device defective [None]
